FAERS Safety Report 4612679-X (Version None)
Quarter: 2005Q1

REPORT INFORMATION
  Report Type: 
  Country: None (occurrence: None)
  Receive Date: 20050316
  Receipt Date: 20050316
  Transmission Date: 20050727
  Serious: Yes (Hospitalization)
  Sender: FDA-Public Use
  Company Number: None

PATIENT
  Sex: Female
  Weight: 47.0834 kg

DRUGS (5)
  1. GEMCITABINE 100 MG/ML [Suspect]
     Indication: PANCREATIC CARCINOMA
     Dosage: 1000 MG/M2 + DAY 1 + 15 INTRAVENOUS
     Route: 042
     Dates: start: 20041025, end: 20050222
  2. BEVACIZUMAB 25MG/ML GENENTECH [Suspect]
     Indication: PANCREATIC CARCINOMA
     Dosage: 10MG/KG DAY 1 + 15 INTRAVENOUS
     Route: 042
     Dates: start: 20041025, end: 20050222
  3. CISPLATIN [Suspect]
     Indication: PANCREATIC CARCINOMA
     Dosage: 50 MG/ML DAY 1 + 15 INTRAVENOUS
     Route: 042
     Dates: start: 20041025, end: 20050222
  4. VICODIN [Concomitant]
  5. COUMADIN [Concomitant]

REACTIONS (12)
  - ABDOMINAL PAIN [None]
  - ALPHA HAEMOLYTIC STREPTOCOCCAL INFECTION [None]
  - ANOREXIA [None]
  - BACK PAIN [None]
  - BLOOD CULTURE POSITIVE [None]
  - CACHEXIA [None]
  - DECREASED APPETITE [None]
  - DIARRHOEA [None]
  - FATIGUE [None]
  - INTESTINAL PERFORATION [None]
  - LIVER ABSCESS [None]
  - WHITE BLOOD CELL COUNT INCREASED [None]
